FAERS Safety Report 17319310 (Version 1)
Quarter: 2020Q1

REPORT INFORMATION
  Report Type: Spontaneous
  Country: US (occurrence: US)
  Receive Date: 20200120
  Receipt Date: 20200120
  Transmission Date: 20200409
  Serious: Yes (Death)
  Sender: FDA-Public Use
  Company Number: US-BIOVITRUM-2020US0207

PATIENT

DRUGS (5)
  1. ANAKINRA [Suspect]
     Active Substance: ANAKINRA
     Indication: HAEMOPHAGOCYTIC LYMPHOHISTIOCYTOSIS
  2. ANAKINRA [Suspect]
     Active Substance: ANAKINRA
     Indication: HAEMOPHAGOCYTIC LYMPHOHISTIOCYTOSIS
     Dosage: 2.4MG/KG/DAY
  3. INDUCTION CHEMOTHERAPHY [Concomitant]
     Indication: PRODUCT USED FOR UNKNOWN INDICATION
  4. CYCLOSPORINE. [Concomitant]
     Active Substance: CYCLOSPORINE
     Indication: PRODUCT USED FOR UNKNOWN INDICATION
  5. DEXAMETHASONE. [Concomitant]
     Active Substance: DEXAMETHASONE
     Indication: PRODUCT USED FOR UNKNOWN INDICATION

REACTIONS (4)
  - Pancreatitis [Fatal]
  - Multiple organ dysfunction syndrome [Fatal]
  - Off label use [Recovered/Resolved]
  - Septic shock [Fatal]
